FAERS Safety Report 10744940 (Version 1)
Quarter: 2015Q1

REPORT INFORMATION
  Report Type: Spontaneous
  Country: JP (occurrence: JP)
  Receive Date: 20150128
  Receipt Date: 20150128
  Transmission Date: 20150721
  Serious: Yes (Other)
  Sender: FDA-Public Use
  Company Number: JP-OTSUKA-JP-2015-10280

PATIENT

DRUGS (5)
  1. ACTIVACIN [Concomitant]
     Active Substance: ALTEPLASE
     Indication: PRODUCT USED FOR UNKNOWN INDICATION
     Dosage: 24 MIU IU(1,000,000S), DAILY DOSE
     Route: 042
  2. SLONNON HI [Concomitant]
     Indication: PRODUCT USED FOR UNKNOWN INDICATION
     Dosage: 50 MG MILLIGRAM(S), DAILY DOSE
     Route: 042
  3. PLAVIX [Concomitant]
     Active Substance: CLOPIDOGREL BISULFATE
     Indication: PRODUCT USED FOR UNKNOWN INDICATION
     Dosage: 75 MG MILLIGRAM(S), DAILY DOSE
     Route: 048
  4. PLETAAL [Suspect]
     Active Substance: CILOSTAZOL
     Indication: CEREBRAL INFARCTION
     Dosage: 10 MG MILLIGRAM(S), DAILY DOSE
     Route: 048
  5. HEPARIN [Concomitant]
     Active Substance: HEPARIN SODIUM
     Indication: PRODUCT USED FOR UNKNOWN INDICATION
     Dosage: 12 KIU IU(1000S), DAILY DOSE
     Route: 042

REACTIONS (1)
  - Cholecystitis acute [Unknown]
